FAERS Safety Report 7650534-1 (Version None)
Quarter: 2011Q3

REPORT INFORMATION
  Report Type: 
  Country: None (occurrence: None)
  Receive Date: 20110802
  Receipt Date: 20110726
  Transmission Date: 20111222
  Serious: Yes (Hospitalization)
  Sender: FDA-Public Use
  Company Number: JP-GLAXOSMITHKLINE-B0735840A

PATIENT
  Age: 90 Year
  Sex: Male

DRUGS (3)
  1. ZOVIRAX [Suspect]
     Indication: HERPES ZOSTER
     Dosage: 750MG PER DAY
     Route: 042
     Dates: start: 20110712, end: 20110718
  2. URITOS [Concomitant]
     Route: 048
     Dates: start: 20110712, end: 20110726
  3. LYRICA [Concomitant]
     Indication: HERPES ZOSTER
     Route: 048
     Dates: start: 20110712, end: 20110726

REACTIONS (1)
  - DYSKINESIA [None]
